FAERS Safety Report 6725206-8 (Version None)
Quarter: 2010Q2

REPORT INFORMATION
  Report Type: 
  Country: None (occurrence: None)
  Receive Date: 20100514
  Receipt Date: 20100506
  Transmission Date: 20101027
  Serious: Yes (Life-Threatening, Hospitalization)
  Sender: FDA-Public Use
  Company Number: PHHY2010NL23981

PATIENT
  Sex: Male

DRUGS (2)
  1. ACLASTA [Suspect]
     Indication: OSTEOPOROSIS
     Dosage: 5 MG
     Route: 042
     Dates: start: 20100414, end: 20100414
  2. MOTILIUM SUPPOSITORY [Suspect]
     Indication: NAUSEA
     Dosage: 60 MG
     Dates: start: 20100414, end: 20100414

REACTIONS (8)
  - ABDOMINAL PAIN [None]
  - HYPERHIDROSIS [None]
  - ILEUS [None]
  - MALAISE [None]
  - POSTOPERATIVE ADHESION [None]
  - SURGERY [None]
  - VOMITING [None]
  - YAWNING [None]
